FAERS Safety Report 6035320-0 (Version None)
Quarter: 2009Q1

REPORT INFORMATION
  Report Type: 
  Country: None (occurrence: None)
  Receive Date: 20090108
  Receipt Date: 20081229
  Transmission Date: 20090719
  Serious: Yes (Hospitalization)
  Sender: FDA-Public Use
  Company Number: DSA_02812_2008

PATIENT
  Age: 25 Year
  Sex: Female

DRUGS (2)
  1. VANIQA [Suspect]
     Indication: HAIR GROWTH ABNORMAL
     Dosage: (DOSAGE AND FREQUENCY UNKNOWN TOPICAL)
     Route: 061
     Dates: start: 20070101
  2. HEPARIN [Concomitant]

REACTIONS (4)
  - CAESAREAN SECTION [None]
  - DRUG EXPOSURE DURING PREGNANCY [None]
  - INDUCED LABOUR [None]
  - MECONIUM STAIN [None]
